FAERS Safety Report 11710728 (Version 1)
Quarter: 2015Q4

REPORT INFORMATION
  Report Type: Spontaneous
  Country: US (occurrence: US)
  Receive Date: 20151104
  Receipt Date: 20151104
  Transmission Date: 20160304
  Serious: No
  Sender: FDA-Public Use
  Company Number: US-ELI_LILLY_AND_COMPANY-US201102002683

PATIENT
  Age: 71 Year
  Sex: Female

DRUGS (10)
  1. FORTEO [Suspect]
     Active Substance: TERIPARATIDE
     Indication: OSTEOPOROSIS
     Dosage: 20 UG, DAILY (1/D)
     Dates: start: 200906
  2. METHOTREXATE [Concomitant]
     Active Substance: METHOTREXATE
     Indication: ARTHRITIS
  3. FORTEO [Suspect]
     Active Substance: TERIPARATIDE
     Dosage: 20 UG, DAILY (1/D)
  4. ANTARA [Concomitant]
     Active Substance: FENOFIBRATE
  5. AVAPRO [Concomitant]
     Active Substance: IRBESARTAN
  6. CRESTOR [Concomitant]
     Active Substance: ROSUVASTATIN CALCIUM
  7. TRAMADOL. [Concomitant]
     Active Substance: TRAMADOL
     Indication: PAIN
  8. TEKTURNA [Concomitant]
     Active Substance: ALISKIREN HEMIFUMARATE
  9. FORTEO [Suspect]
     Active Substance: TERIPARATIDE
     Dosage: 20 UG, QD
     Route: 065
  10. FOLIC ACID. [Concomitant]
     Active Substance: FOLIC ACID

REACTIONS (9)
  - Exostosis [Unknown]
  - Pain in extremity [Unknown]
  - Back pain [Unknown]
  - Arthritis [Unknown]
  - Knee arthroplasty [Unknown]
  - Bone disorder [Unknown]
  - Paraesthesia [Unknown]
  - Gait disturbance [Unknown]
  - Movement disorder [Unknown]

NARRATIVE: CASE EVENT DATE: 20100901
